FAERS Safety Report 25029918 (Version 3)
Quarter: 2025Q3

REPORT INFORMATION
  Report Type: Report from Study
  Country: US (occurrence: US)
  Receive Date: 20250303
  Receipt Date: 20250809
  Transmission Date: 20251020
  Serious: Yes (Other)
  Sender: ALEXION PHARMACEUTICALS
  Company Number: US-ASTRAZENECA-202501USA027617US

PATIENT
  Sex: Male

DRUGS (2)
  1. OLAPARIB [Suspect]
     Active Substance: OLAPARIB
     Indication: Prostate cancer
     Dosage: 150 MILLIGRAM, QD
     Dates: start: 20250117
  2. OLAPARIB [Suspect]
     Active Substance: OLAPARIB
     Dosage: 300 MILLIGRAM, BID
     Dates: start: 20250204

REACTIONS (1)
  - Rectal haemorrhage [Recovered/Resolved]
